FAERS Safety Report 7692458-X (Version None)
Quarter: 2011Q3

REPORT INFORMATION
  Report Type: 
  Country: None (occurrence: None)
  Receive Date: 20110818
  Receipt Date: 20110804
  Transmission Date: 20111222
  Serious: Yes (Hospitalization, Other)
  Sender: FDA-Public Use
  Company Number: IT-CELGENEUS-083-21880-11061358

PATIENT
  Age: 82 Year
  Sex: Female

DRUGS (9)
  1. NEORECORMON [Concomitant]
     Route: 065
  2. METOPROLOL [Concomitant]
     Dosage: 75 MILLIGRAM
     Route: 048
  3. EPINITRIL [Concomitant]
     Dosage: 10 MILLIGRAM
     Route: 065
  4. REVLIMID [Suspect]
     Dosage: 10 MILLIGRAM
     Route: 048
     Dates: start: 20090101
  5. TRIATEC HCT [Concomitant]
     Dosage: 20.5 MILLIGRAM
     Route: 048
  6. RED BLOOD CELLS [Concomitant]
     Route: 041
  7. LANSOPRAZOLE [Concomitant]
     Dosage: 30 MILLIGRAM
     Route: 048
  8. MOTILEX [Concomitant]
     Route: 065
  9. MINIAS [Concomitant]
     Route: 065

REACTIONS (3)
  - CARDIOPULMONARY FAILURE [None]
  - RENAL IMPAIRMENT [None]
  - CARDIAC FAILURE [None]
